FAERS Safety Report 24468351 (Version 1)
Quarter: 2024Q4

REPORT INFORMATION
  Report Type: Spontaneous
  Country: PL (occurrence: PL)
  Receive Date: 20241018
  Receipt Date: 20241018
  Transmission Date: 20250115
  Serious: Yes (Other)
  Sender: RANBAXY
  Company Number: PL-EMA-DD-20240821-7482707-081901

PATIENT
  Age: 76 Year
  Sex: Female

DRUGS (8)
  1. DABIGATRAN [Suspect]
     Active Substance: DABIGATRAN
     Indication: Atrial fibrillation
     Dosage: 150 MG, 2X PER DAY
     Route: 065
  2. RAMIPRIL [Suspect]
     Active Substance: RAMIPRIL
     Indication: Hypertension
     Dosage: 5 MG 1X DAILY
     Route: 065
  3. ROSUVASTATIN [Suspect]
     Active Substance: ROSUVASTATIN
     Indication: Hypercholesterolaemia
     Dosage: 20 MG, 1X PER DAY
     Route: 065
  4. VITAMIN D3 [Suspect]
     Active Substance: CHOLECALCIFEROL
     Indication: Vitamin supplementation
     Dosage: 4000 INTERNATIONAL UNIT, DAILY
     Route: 065
  5. PIRACETAM [Suspect]
     Active Substance: PIRACETAM
     Indication: Cognitive disorder
     Dosage: 1200 MG, 3X PER DAY
     Route: 065
  6. BISOPROLOL [Suspect]
     Active Substance: BISOPROLOL\BISOPROLOL FUMARATE
     Indication: Atrial fibrillation
     Dosage: STRENGTH: 5 MG
     Route: 065
  7. DICLOFENAC [Suspect]
     Active Substance: DICLOFENAC
     Indication: Osteoarthritis
     Dosage: STRENGTH: 50 MG. 50 MG 1 X DAILY PLUS 1-2 TABLETS IN CASE OF PAIN
     Route: 065
  8. DOXAZOSIN [Suspect]
     Active Substance: DOXAZOSIN\DOXAZOSIN MESYLATE
     Indication: Hypertension
     Dosage: STRENGTH: 1 MG
     Route: 065

REACTIONS (5)
  - Syncope [Recovering/Resolving]
  - Blood pressure inadequately controlled [Unknown]
  - Orthostatic hypotension [Recovered/Resolved]
  - Dizziness [Recovering/Resolving]
  - Fall [Recovered/Resolved]
